FAERS Safety Report 11019018 (Version 2)
Quarter: 2015Q2

REPORT INFORMATION
  Report Type: Spontaneous
  Country: US (occurrence: US)
  Receive Date: 20150412
  Receipt Date: 20150525
  Transmission Date: 20150821
  Serious: Yes (Other)
  Sender: FDA-Public Use
  Company Number: US-JNJFOC-20121200003

PATIENT
  Sex: Male

DRUGS (1)
  1. LEVAQUIN [Suspect]
     Active Substance: LEVOFLOXACIN
     Indication: PHARYNGEAL DISORDER
     Dosage: 3 PILLS
     Route: 065

REACTIONS (3)
  - Arthralgia [Unknown]
  - Tendon pain [Unknown]
  - Gait disturbance [Unknown]
